FAERS Safety Report 4287245-9 (Version None)
Quarter: 2004Q1

REPORT INFORMATION
  Report Type: 
  Country: None (occurrence: None)
  Receive Date: 20040126
  Receipt Date: 20030908
  Transmission Date: 20041129
  Serious: No
  Sender: FDA-Public Use
  Company Number: USA030640072

PATIENT
  Age: 73 Year
  Sex: Female
  Weight: 58 kg

DRUGS (6)
  1. FORTEO [Suspect]
     Indication: OSTEOPOROSIS
     Dosage: 20 UG/DAY
     Dates: start: 20030601
  2. LIPITOR [Concomitant]
  3. FOSAMAX [Concomitant]
  4. CALTRATE (CALCIUM CARBONATE) [Concomitant]
  5. MULTIVITAMIN [Concomitant]
  6. VITAMIN C [Concomitant]

REACTIONS (5)
  - ARTHROPOD BITE [None]
  - INJECTION SITE DISCOLOURATION [None]
  - INJECTION SITE HAEMORRHAGE [None]
  - RASH ERYTHEMATOUS [None]
  - RASH PRURITIC [None]
